FAERS Safety Report 7440054-1 (Version None)
Quarter: 2011Q2

REPORT INFORMATION
  Report Type: 
  Country: None (occurrence: None)
  Receive Date: 20110427
  Receipt Date: 20110415
  Transmission Date: 20111010
  Serious: Yes (Hospitalization, Other)
  Sender: FDA-Public Use
  Company Number: US-BAYER-201013589NA

PATIENT
  Age: 25 Year
  Sex: Female
  Weight: 100 kg

DRUGS (25)
  1. PROZAC [Concomitant]
     Dosage: 60 MG, UNK
     Dates: start: 20031124
  2. RITALIN [Concomitant]
     Route: 048
  3. VANIQUA [Concomitant]
     Dosage: UNK UNK, QD
  4. LEXAPRO [Concomitant]
     Dosage: DAILY DOSE 20 MG
     Route: 065
  5. XYPRESA [Concomitant]
     Route: 048
  6. ALLEGRA [Concomitant]
     Dosage: 180 MG, QD
  7. YASMIN [Suspect]
     Indication: POLYCYSTIC OVARIES
     Dosage: SAMPLES RECEIVED IN 2000-2006. - AS USED DOSE: UNK
     Route: 048
     Dates: start: 20030128, end: 20080201
  8. SEROQUEL [Concomitant]
     Dosage: DAILY DOSE 300 MG
     Route: 065
  9. TOPAMAX [Concomitant]
     Dosage: DAILY DOSE 200 MG
     Route: 048
     Dates: start: 20050607
  10. RAMIPRIL [Concomitant]
     Route: 065
     Dates: start: 20080201, end: 20080701
  11. STRATTERA [Concomitant]
     Dosage: 40 MG, QD
     Route: 048
  12. METOPROLOL [Concomitant]
  13. YASMIN [Suspect]
     Indication: CONTRACEPTION
  14. FLUOXETINE [Concomitant]
     Dosage: DAILY DOSE 20 MG
     Route: 065
  15. AMOXICILLIN [Concomitant]
     Dosage: 875 MG, UNK
     Route: 048
  16. ZITHROMAX [Concomitant]
     Dosage: UNK MG, UNK
     Route: 048
     Dates: start: 20050607
  17. MECLIZINE [Concomitant]
     Dosage: 25 MG, UNK
     Dates: start: 20070130
  18. WELLBUTRIN [Concomitant]
     Dosage: 150 MG, UNK
     Route: 048
  19. PRILOSEC [Concomitant]
  20. NITRO-DUR [Concomitant]
  21. ASPIRIN [Concomitant]
  22. XENICAL [Concomitant]
     Dosage: UNK
     Route: 048
     Dates: start: 20070223
  23. ILOPAN [Concomitant]
  24. ACETAMINOPHEN [Concomitant]
  25. ALTACE [Concomitant]

REACTIONS (5)
  - ACUTE MYOCARDIAL INFARCTION [None]
  - GALLBLADDER DISORDER [None]
  - CHOLECYSTITIS CHRONIC [None]
  - BUNDLE BRANCH BLOCK RIGHT [None]
  - CHEST PAIN [None]
